FAERS Safety Report 5910459-6 (Version None)
Quarter: 2008Q4

REPORT INFORMATION
  Report Type: 
  Country: None (occurrence: None)
  Receive Date: 20081007
  Receipt Date: 20080926
  Transmission Date: 20090506
  Serious: Yes (Other)
  Sender: FDA-Public Use
  Company Number: GB-TEVA-178151ISR

PATIENT
  Age: 25 Year
  Sex: Male

DRUGS (2)
  1. MIRTAZAPINE [Suspect]
     Indication: DEPRESSION
     Route: 048
     Dates: start: 20080901
  2. MIRTAZAPINE [Suspect]
     Route: 048
     Dates: start: 20080908

REACTIONS (1)
  - INTERNATIONAL NORMALISED RATIO INCREASED [None]
